FAERS Safety Report 22001745 (Version 2)
Quarter: 2023Q1

REPORT INFORMATION
  Report Type: Spontaneous
  Country: US (occurrence: US)
  Receive Date: 20230216
  Receipt Date: 20230227
  Transmission Date: 20230418
  Serious: Yes (Death, Hospitalization)
  Sender: FDA-Public Use
  Company Number: US-TEVA-2023-US-2854736

PATIENT
  Age: 3 Decade
  Sex: Male

DRUGS (10)
  1. EPINEPHRINE [Suspect]
     Active Substance: EPINEPHRINE
     Indication: Toxicity to various agents
     Dosage: 2.5 MG (1:10 000)
     Route: 042
  2. EPINEPHRINE [Suspect]
     Active Substance: EPINEPHRINE
     Dosage: 2MG
     Route: 042
  3. HYDROXOCOBALAMIN [Suspect]
     Active Substance: HYDROXOCOBALAMIN
     Indication: Toxicity to various agents
     Dosage: 5G
     Route: 042
  4. CALCIUM CHLORIDE [Suspect]
     Active Substance: CALCIUM CHLORIDE
     Indication: Toxicity to various agents
     Dosage: 1G
     Route: 042
  5. CALCIUM CHLORIDE [Suspect]
     Active Substance: CALCIUM CHLORIDE
     Dosage: AGAIN RECEIVED 1G
     Route: 042
  6. SODIUM BICARBONATE [Suspect]
     Active Substance: SODIUM BICARBONATE
     Indication: Toxicity to various agents
     Dosage: 100MEQ SODIUM BICARBONATE 8.4%
     Route: 042
  7. SODIUM BICARBONATE [Suspect]
     Active Substance: SODIUM BICARBONATE
     Dosage: 50MEQ SODIUM BICARBONATE 8.4%
     Route: 042
  8. METHYLENE BLUE [Suspect]
     Active Substance: METHYLENE BLUE
     Indication: Toxicity to various agents
     Dosage: 100MG
     Route: 042
  9. METHYLENE BLUE [Suspect]
     Active Substance: METHYLENE BLUE
     Dosage: 50MG
     Route: 042
  10. INTRALIPID [Suspect]
     Active Substance: EGG PHOSPHOLIPIDS\GLYCERIN\SOYBEAN OIL
     Indication: Toxicity to various agents
     Dosage: 125ML
     Route: 042

REACTIONS (1)
  - Drug ineffective [Fatal]
